FAERS Safety Report 25205514 (Version 1)
Quarter: 2025Q2

REPORT INFORMATION
  Report Type: Spontaneous
  Country: GR (occurrence: GR)
  Receive Date: 20250417
  Receipt Date: 20250417
  Transmission Date: 20250716
  Serious: Yes (Hospitalization, Other)
  Sender: RANBAXY
  Company Number: GR-SUN PHARMACEUTICAL INDUSTRIES LTD-2025R1-503224

PATIENT
  Age: 67 Year
  Sex: Male

DRUGS (2)
  1. ASCORBIC ACID [Suspect]
     Active Substance: ASCORBIC ACID
     Indication: Product used for unknown indication
     Dosage: 1 GRAM, DAILY
     Route: 048
  2. ASCORBIC ACID [Suspect]
     Active Substance: ASCORBIC ACID
     Dosage: 2-3 GRAM, DAILY
     Route: 048

REACTIONS (3)
  - Oxalosis [Recovering/Resolving]
  - Hyperoxaluria [Recovering/Resolving]
  - Vitamin C increased [Recovering/Resolving]
